FAERS Safety Report 12553581 (Version 1)
Quarter: 2016Q3

REPORT INFORMATION
  Report Type: Spontaneous
  Country: AU (occurrence: AU)
  Receive Date: 20160713
  Receipt Date: 20160713
  Transmission Date: 20161109
  Serious: Yes (Death, Hospitalization, Other)
  Sender: FDA-Public Use
  Company Number: AU-ACTAVIS-2016-15138

PATIENT
  Age: 53 Year
  Sex: Female

DRUGS (1)
  1. CARBAMAZEPINE (UNKNOWN) [Suspect]
     Active Substance: CARBAMAZEPINE
     Indication: PRODUCT USED FOR UNKNOWN INDICATION
     Dosage: UNK
     Route: 065

REACTIONS (13)
  - Cardiac failure [Fatal]
  - Sepsis [Unknown]
  - Atrial fibrillation [Unknown]
  - Blindness [Unknown]
  - Depression [Unknown]
  - Endocrine disorder [Unknown]
  - Pulmonary oedema [Unknown]
  - Cardiac disorder [Unknown]
  - Toxic epidermal necrolysis [Unknown]
  - Hypercholesterolaemia [Unknown]
  - Anaemia [Unknown]
  - Renal impairment [Unknown]
  - Corneal erosion [Unknown]

NARRATIVE: CASE EVENT DATE: 1988
